FAERS Safety Report 16081284 (Version 1)
Quarter: 2019Q1

REPORT INFORMATION
  Report Type: Spontaneous
  Country: GB (occurrence: GB)
  Receive Date: 20190316
  Receipt Date: 20190316
  Transmission Date: 20190418
  Serious: Yes (Death, Hospitalization, Disabling, Other)
  Sender: FDA-Public Use
  Company Number: GB-ACCORD-112722

PATIENT
  Age: 78 Year
  Sex: Male
  Weight: 77 kg

DRUGS (17)
  1. OXALIPLATIN. [Suspect]
     Active Substance: OXALIPLATIN
     Indication: COLORECTAL CANCER METASTATIC
     Route: 042
     Dates: start: 20180905, end: 20180905
  2. CYCLIZINE [Concomitant]
     Active Substance: CYCLIZINE
  3. RALTITREXED [Suspect]
     Active Substance: RALTITREXED
     Indication: COLORECTAL CANCER METASTATIC
     Route: 042
     Dates: start: 20180905, end: 20180905
  4. LOPERAMIDE [Concomitant]
     Active Substance: LOPERAMIDE
  5. METOCLOPRAMIDE. [Concomitant]
     Active Substance: METOCLOPRAMIDE
  6. TAMSULOSIN/TAMSULOSIN HYDROCHLORIDE [Concomitant]
  7. ONDANSETRON [Concomitant]
     Active Substance: ONDANSETRON
  8. FUROSEMIDE. [Concomitant]
     Active Substance: FUROSEMIDE
  9. DEXAMETHASONE. [Concomitant]
     Active Substance: DEXAMETHASONE
  10. IRON [Concomitant]
     Active Substance: IRON
  11. GLYCERYL TRINITRATE [Concomitant]
     Active Substance: NITROGLYCERIN
  12. TICAGRELOR. [Concomitant]
     Active Substance: TICAGRELOR
  13. ISOSORBIDE. [Concomitant]
     Active Substance: ISOSORBIDE
  14. OMEPRAZOLE. [Concomitant]
     Active Substance: OMEPRAZOLE
  15. ACETYLSALICYLIC ACID [Concomitant]
     Active Substance: ASPIRIN
  16. BISOPROLOL [Concomitant]
     Active Substance: BISOPROLOL
  17. RAMIPRIL. [Concomitant]
     Active Substance: RAMIPRIL

REACTIONS (4)
  - Functional gastrointestinal disorder [Fatal]
  - Diarrhoea haemorrhagic [Not Recovered/Not Resolved]
  - Nausea [Unknown]
  - Vomiting [Unknown]

NARRATIVE: CASE EVENT DATE: 20180908
